FAERS Safety Report 21168150 (Version 1)
Quarter: 2022Q3

REPORT INFORMATION
  Report Type: Spontaneous
  Country: US (occurrence: None)
  Receive Date: 20220803
  Receipt Date: 20220803
  Transmission Date: 20221027
  Serious: Yes (Hospitalization)
  Sender: FDA-Public Use
  Company Number: None

PATIENT
  Age: 16 Year
  Sex: Female
  Weight: 57.4 kg

DRUGS (2)
  1. TEPEZZA [Suspect]
     Active Substance: TEPROTUMUMAB-TRBW
     Indication: Basedow^s disease
     Dosage: FREQUENCY : EVERY THREE WEEKS;?
     Route: 041
     Dates: start: 20220218, end: 20220719
  2. METHIMAZOLE [Concomitant]
     Active Substance: METHIMAZOLE
     Dates: start: 20210426

REACTIONS (9)
  - Diarrhoea [None]
  - Product intolerance [None]
  - Nausea [None]
  - Vomiting [None]
  - Abdominal pain [None]
  - Chest pain [None]
  - Burning sensation [None]
  - Weight decreased [None]
  - Amenorrhoea [None]

NARRATIVE: CASE EVENT DATE: 20220719
